FAERS Safety Report 20615734 (Version 1)
Quarter: 2022Q1

REPORT INFORMATION
  Report Type: Spontaneous
  Country: PL (occurrence: PL)
  Receive Date: 20220321
  Receipt Date: 20220321
  Transmission Date: 20220423
  Serious: Yes (Other)
  Sender: FDA-Public Use
  Company Number: PL-MLMSERVICE-20211209-3264497-1

PATIENT
  Age: 17 Year
  Sex: Female

DRUGS (9)
  1. CLOZAPINE [Suspect]
     Active Substance: CLOZAPINE
     Indication: Schizophrenia
     Dosage: 375 MILLIGRAM, QD
  2. CLOZAPINE [Suspect]
     Active Substance: CLOZAPINE
     Dosage: 300 MILLIGRAM, QD
  3. CLOZAPINE [Suspect]
     Active Substance: CLOZAPINE
     Dosage: 200 MILLIGRAM, QD
  4. LORAZEPAM [Concomitant]
     Active Substance: LORAZEPAM
     Indication: Schizophrenia
     Dosage: UNK
     Dates: start: 2019
  5. OPIPRAMOL [Concomitant]
     Active Substance: OPIPRAMOL
     Indication: Schizophrenia
     Dosage: UNK
  6. PERAZINE [Concomitant]
     Active Substance: PERAZINE
     Indication: Schizophrenia
     Dosage: 500 MILLIGRAM, QD
  7. ARIPIPRAZOLE [Concomitant]
     Active Substance: ARIPIPRAZOLE
     Indication: Schizophrenia
     Dosage: 15 MILLIGRAM, QD
  8. RISPERIDONE [Concomitant]
     Active Substance: RISPERIDONE
     Indication: Schizophrenia
     Dosage: 2 MILLIGRAM, QD
     Dates: start: 2019
  9. SERTRALINE [Concomitant]
     Active Substance: SERTRALINE HYDROCHLORIDE
     Indication: Affective disorder
     Dosage: 50 MILLIGRAM, QD

REACTIONS (2)
  - Tongue biting [Unknown]
  - Epilepsy [Unknown]

NARRATIVE: CASE EVENT DATE: 20190101
